FAERS Safety Report 14248339 (Version 1)
Quarter: 2017Q4

REPORT INFORMATION
  Report Type: Spontaneous
  Country: GB (occurrence: GB)
  Receive Date: 20171202
  Receipt Date: 20171202
  Transmission Date: 20180321
  Serious: Yes (Disabling)
  Sender: FDA-Public Use
  Company Number: None

PATIENT
  Age: 11 Year
  Sex: Female

DRUGS (4)
  1. HYDROCORTISONE. [Suspect]
     Active Substance: HYDROCORTISONE
     Indication: ECZEMA
     Route: 061
  2. FISH OIL [Concomitant]
     Active Substance: FISH OIL
  3. HIGH VIT C [Concomitant]
  4. BETNOVATE [Suspect]
     Active Substance: BETAMETHASONE
     Indication: ECZEMA
     Route: 061

REACTIONS (9)
  - Fatigue [None]
  - Skin burning sensation [None]
  - Adrenal disorder [None]
  - Secretion discharge [None]
  - Skin disorder [None]
  - Impaired healing [None]
  - Pruritus [None]
  - Food allergy [None]
  - Body temperature fluctuation [None]
